FAERS Safety Report 15027107 (Version 1)
Quarter: 2018Q2

REPORT INFORMATION
  Report Type: Spontaneous
  Country: DE (occurrence: DE)
  Receive Date: 20180619
  Receipt Date: 20180619
  Transmission Date: 20180711
  Serious: Yes (Disabling, Other)
  Sender: FDA-Public Use
  Company Number: DE-MERCK KGAA-2049601

PATIENT
  Age: 71 Year
  Sex: Female

DRUGS (1)
  1. NOVOTHYROX [Suspect]
     Active Substance: LEVOTHYROXINE SODIUM
     Indication: PRODUCT USED FOR UNKNOWN INDICATION

REACTIONS (7)
  - Motor dysfunction [None]
  - Hypoaesthesia [None]
  - Deafness [None]
  - Headache [None]
  - Glaucoma [None]
  - Mental impairment [None]
  - Muscle spasms [None]
